FAERS Safety Report 10714788 (Version 1)
Quarter: 2015Q1

REPORT INFORMATION
  Report Type: Spontaneous
  Country: IT (occurrence: IT)
  Receive Date: 20150115
  Receipt Date: 20150115
  Transmission Date: 20150721
  Serious: Yes (Death, Other)
  Sender: FDA-Public Use
  Company Number: IT-GLAXOSMITHKLINE-IT2015GSK003191

PATIENT
  Age: 49 Year
  Sex: Female

DRUGS (3)
  1. TYVERB [Suspect]
     Active Substance: LAPATINIB
     Indication: BREAST CANCER
     Dosage: 1250 MG, QD
     Route: 048
     Dates: start: 20141119, end: 20141228
  2. CAPECITABINE. [Suspect]
     Active Substance: CAPECITABINE
     Indication: BREAST CANCER
     Dosage: 2500 MG, CYC
     Route: 048
     Dates: start: 20141119, end: 20141228
  3. DESAMETASONE [Concomitant]
     Active Substance: DEXAMETHASONE
     Dosage: 16 MG, UNK
     Route: 048
     Dates: start: 20141104, end: 20141228

REACTIONS (3)
  - Pneumonia fungal [Fatal]
  - Fungal infection [Fatal]
  - Brain abscess [Fatal]

NARRATIVE: CASE EVENT DATE: 20141228
